FAERS Safety Report 12548353 (Version 1)
Quarter: 2016Q3

REPORT INFORMATION
  Report Type: Spontaneous
  Country: US (occurrence: None)
  Receive Date: 20160711
  Receipt Date: 20160711
  Transmission Date: 20161109
  Serious: Yes (Hospitalization)
  Sender: FDA-Public Use
  Company Number: None

PATIENT
  Age: 56 Year
  Sex: Female
  Weight: 74.1 kg

DRUGS (1)
  1. IPILIMUMAB (BMS-734016; MDX-010 TRANSFECTINADERIVED) [Suspect]
     Active Substance: IPILIMUMAB
     Dates: end: 20160609

REACTIONS (3)
  - Fluid intake reduced [None]
  - Pain [None]
  - Blood creatinine increased [None]

NARRATIVE: CASE EVENT DATE: 20160705
